FAERS Safety Report 18699557 (Version 1)
Quarter: 2021Q1

REPORT INFORMATION
  Report Type: Spontaneous
  Country: US (occurrence: US)
  Receive Date: 20210104
  Receipt Date: 20210104
  Transmission Date: 20210419
  Serious: No
  Sender: FDA-Public Use
  Company Number: US-PFIZER INC-2020518565

PATIENT
  Age: 50 Year
  Sex: Female

DRUGS (2)
  1. XELJANZ XR [Suspect]
     Active Substance: TOFACITINIB CITRATE
     Indication: RHEUMATOID ARTHRITIS
     Dosage: 11 MG, DAILY (IN THE EVENING AND THEN IN MORNING)
     Route: 048
     Dates: start: 20200821
  2. PREDNISONE. [Concomitant]
     Active Substance: PREDNISONE
     Dosage: TAPERING DOWN TO 4MG TWICE DAILY

REACTIONS (4)
  - Diarrhoea [Recovering/Resolving]
  - Malabsorption [Recovering/Resolving]
  - Musculoskeletal stiffness [Unknown]
  - Product residue present [Recovering/Resolving]
